FAERS Safety Report 4593295-5 (Version None)
Quarter: 2005Q1

REPORT INFORMATION
  Report Type: 
  Country: None (occurrence: None)
  Receive Date: 20050224
  Receipt Date: 20040413
  Transmission Date: 20050727
  Serious: No
  Sender: FDA-Public Use
  Company Number: US-BRISTOL-MYERS SQUIBB COMPANY-12560819

PATIENT
  Sex: Male

DRUGS (6)
  1. EXCEDRIN (MIGRAINE) [Suspect]
  2. EXCEDRIN (MIGRAINE) [Suspect]
     Indication: HEADACHE
  3. EXCEDRIN (MIGRAINE) [Suspect]
     Indication: NECK PAIN
  4. ADVIL [Concomitant]
  5. BENADRYL [Concomitant]
  6. TYLENOL (CAPLET) [Concomitant]

REACTIONS (1)
  - RASH PRURITIC [None]
